FAERS Safety Report 14099053 (Version 1)
Quarter: 2017Q4

REPORT INFORMATION
  Report Type: Spontaneous
  Country: US (occurrence: US)
  Receive Date: 20171017
  Receipt Date: 20171017
  Transmission Date: 20180321
  Serious: No
  Sender: FDA-Public Use
  Company Number: US-BIOCOMPATIBLES UK LTD-2017BTG01374

PATIENT
  Sex: Male

DRUGS (1)
  1. CROFAB [Suspect]
     Active Substance: CROTALIDAE POLYVALENT IMMUNE FAB (OVINE)
     Indication: SNAKE BITE
     Dosage: 10 VIALS, UNK
     Route: 042
     Dates: start: 20170917, end: 20170918

REACTIONS (5)
  - Muscular weakness [Unknown]
  - Administration site swelling [Unknown]
  - Administration site pain [Unknown]
  - Administration site movement impairment [Unknown]
  - Administration site extravasation [Unknown]

NARRATIVE: CASE EVENT DATE: 20170917
